FAERS Safety Report 5196574-6 (Version None)
Quarter: 2006Q4

REPORT INFORMATION
  Report Type: 
  Country: None (occurrence: None)
  Receive Date: 20061228
  Receipt Date: 20061228
  Transmission Date: 20070319
  Serious: No
  Sender: FDA-Public Use
  Company Number: None

PATIENT

DRUGS (2)
  1. BENICAR [Suspect]
     Dosage: 40MG
  2. DR. WHITAKER'S BP ESSENTIALS (FISH PEPTIDE EXTRACT - ANGIOTENSIN CONVE [Suspect]
     Dosage: 1750 MG

REACTIONS (2)
  - NERVOUS SYSTEM DISORDER [None]
  - NUCLEAR MAGNETIC RESONANCE IMAGING BRAIN ABNORMAL [None]
